FAERS Safety Report 18119847 (Version 2)
Quarter: 2020Q3

REPORT INFORMATION
  Report Type: Spontaneous
  Country: PT (occurrence: PT)
  Receive Date: 20200806
  Receipt Date: 20200821
  Transmission Date: 20201103
  Serious: Yes (Other)
  Sender: FDA-Public Use
  Company Number: PT-TEVA-2020-PT-1810160

PATIENT
  Age: 69 Year
  Sex: Male
  Weight: 83 kg

DRUGS (11)
  1. AMOXICILLIN, CLAVULANIC ACID [Concomitant]
     Active Substance: AMOXICILLIN\CLAVULANIC ACID
     Dosage: 2 DOSAGE FORMS,8/8H
     Route: 048
     Dates: start: 20200328, end: 20200330
  2. METAMIZOLE MAGNESIUM [Concomitant]
     Active Substance: METAMIZOLE MAGNESIUM
     Dosage: 575 MG,SOS
     Route: 048
     Dates: start: 20200329, end: 20200702
  3. ALFUZOSIN [Concomitant]
     Active Substance: ALFUZOSIN
     Dosage: 10 MILLIGRAM DAILY; 1 CP 1XDAY
     Route: 048
     Dates: start: 20200329, end: 20200407
  4. PIPERACILLIN AND TAZOBACTAM [Concomitant]
     Active Substance: PIPERACILLIN SODIUM\TAZOBACTAM SODIUM
     Dosage: 1 CP 8H/8H,2 DOSAGE FORMS
     Dates: start: 20200331, end: 20200407
  5. ALLOPURINOL. [Concomitant]
     Active Substance: ALLOPURINOL
     Dosage: 100 MG,24/24H
     Route: 048
     Dates: start: 20200330, end: 20200407
  6. PLAQUINOL [Suspect]
     Active Substance: HYDROXYCHLOROQUINE SULFATE
     Indication: COVID-19
     Dosage: 400 MILL EQUIVALENTS,400MG 12 / 12H IN D0 AND THEN 200MG 12 / 12H
     Route: 048
     Dates: start: 20200328, end: 20200406
  7. METOCLOPRAMIDE. [Concomitant]
     Active Substance: METOCLOPRAMIDE
     Dosage: 10 MG
     Route: 048
     Dates: start: 20200330, end: 20200407
  8. CETIRIZINE [Concomitant]
     Active Substance: CETIRIZINE HYDROCHLORIDE
     Dosage: 10 MG
     Route: 048
     Dates: start: 20200329, end: 20200330
  9. AZITHROMYCIN ANHYDROUS. [Suspect]
     Active Substance: AZITHROMYCIN ANHYDROUS
     Indication: COVID-19
     Dosage: 500 MILLIGRAM DAILY;
     Route: 048
     Dates: start: 20200326, end: 20200402
  10. ATENOLOL. [Concomitant]
     Active Substance: ATENOLOL
     Dosage: 50 MG ,1 CP 24/24H
     Route: 048
     Dates: start: 20200328, end: 20200407
  11. PARACETAMOL [Concomitant]
     Active Substance: ACETAMINOPHEN
     Dosage: 1000MG SOS
     Route: 048
     Dates: start: 20200329, end: 20200407

REACTIONS (3)
  - Transaminases increased [Unknown]
  - Hepatotoxicity [Unknown]
  - COVID-19 treatment [Unknown]

NARRATIVE: CASE EVENT DATE: 20200330
